FAERS Safety Report 25323330 (Version 1)
Quarter: 2025Q2

REPORT INFORMATION
  Report Type: Spontaneous
  Country: US (occurrence: US)
  Receive Date: 20250516
  Receipt Date: 20250516
  Transmission Date: 20250716
  Serious: Yes (Other)
  Sender: UNIQUE PHARMACEUTICALS
  Company Number: US-UniquePharma-US-2025UPLSPO00061

PATIENT
  Sex: Male

DRUGS (2)
  1. ATENOLOL [Suspect]
     Active Substance: ATENOLOL
     Indication: Product used for unknown indication
     Route: 065
     Dates: start: 2011
  2. ATENOLOL [Suspect]
     Active Substance: ATENOLOL
     Route: 065
     Dates: start: 202109

REACTIONS (2)
  - Nephrolithiasis [Recovered/Resolved]
  - Renal impairment [Recovered/Resolved]
